FAERS Safety Report 10615715 (Version 3)
Quarter: 2015Q1

REPORT INFORMATION
  Report Type: Spontaneous
  Country: SE (occurrence: SE)
  Receive Date: 20141201
  Receipt Date: 20150221
  Transmission Date: 20150720
  Serious: Yes (Other)
  Sender: FDA-Public Use
  Company Number: SE-009507513-1411SWE012917

PATIENT
  Age: 53 Year
  Sex: Female

DRUGS (6)
  1. DECA-DURABOLIN [Suspect]
     Active Substance: NANDROLONE DECANOATE
     Dosage: STRENGTH: 50 MG/ML; 1 ML, EVERY 6 WEEKS
  2. DECA-DURABOLIN [Suspect]
     Active Substance: NANDROLONE DECANOATE
     Dosage: STRENGTH: 50 MG/ML; 1 ML, EVERY 3 WEEKS
     Dates: start: 199710
  3. IPREN [Concomitant]
     Active Substance: IBUPROFEN
     Dosage: 400 MG, TID
     Route: 048
  4. SKELAXIN [Concomitant]
     Active Substance: METAXALONE
     Dosage: 400 MG, QID
     Route: 048
     Dates: start: 2000
  5. DECA-DURABOLIN [Suspect]
     Active Substance: NANDROLONE DECANOATE
     Indication: HERNIA PAIN
     Dosage: STRENGTH: 50 MG/ML; 1 ML, EVERY 3 MONTHS
     Dates: end: 2002
  6. MIRTAZAPINE. [Concomitant]
     Active Substance: MIRTAZAPINE
     Dosage: 15 MG, QD
     Route: 048
     Dates: start: 2000

REACTIONS (2)
  - Myalgia [Not Recovered/Not Resolved]
  - Nervous system disorder [Not Recovered/Not Resolved]

NARRATIVE: CASE EVENT DATE: 1997
